FAERS Safety Report 12523166 (Version 6)
Quarter: 2017Q3

REPORT INFORMATION
  Report Type: Spontaneous
  Country: JP (occurrence: JP)
  Receive Date: 20160701
  Receipt Date: 20170721
  Transmission Date: 20171127
  Serious: Yes (Hospitalization)
  Sender: FDA-Public Use
  Company Number: JP-AMGEN-JPNSP2016086133

PATIENT
  Age: 66 Year
  Sex: Female
  Weight: 58 kg

DRUGS (10)
  1. ENDOXAN [Concomitant]
     Active Substance: CYCLOPHOSPHAMIDE
     Indication: B-CELL LYMPHOMA
     Dosage: 1140 MG, Q3WK
     Route: 041
     Dates: start: 20160407, end: 20160428
  2. MAGMITT [Concomitant]
     Active Substance: MAGNESIUM OXIDE
     Indication: CONSTIPATION PROPHYLAXIS
     Dosage: 330 MG, TID
     Route: 048
     Dates: start: 20160406
  3. GRANISETRON [Concomitant]
     Active Substance: GRANISETRON
     Indication: B-CELL LYMPHOMA
     Dosage: 3 MG, Q3WK
     Route: 041
     Dates: start: 20160407, end: 20160428
  4. PREDONINE [Concomitant]
     Active Substance: PREDNISOLONE
     Indication: B-CELL LYMPHOMA
     Dosage: 100 MG, QD
     Route: 048
     Dates: start: 20160428, end: 20160502
  5. G-LASTA [Suspect]
     Active Substance: PEGFILGRASTIM
     Indication: COLONY STIMULATING FACTOR PROPHYLAXIS
     Dosage: 3.6 MG, QD
     Route: 058
     Dates: start: 20160502, end: 20160502
  6. ONCOVIN [Concomitant]
     Active Substance: VINCRISTINE SULFATE
     Indication: B-CELL LYMPHOMA
     Dosage: 2 MG, Q3WK
     Route: 041
     Dates: start: 20160407, end: 20160428
  7. ADRIACIN [Concomitant]
     Active Substance: DOXORUBICIN HYDROCHLORIDE
     Indication: B-CELL LYMPHOMA
     Dosage: 76 MG, Q3WK
     Route: 041
     Dates: start: 20160407, end: 20160428
  8. LANSOPRAZOLE. [Concomitant]
     Active Substance: LANSOPRAZOLE
     Indication: GASTRITIS PROPHYLAXIS
     Dosage: 15 MG, QD
     Route: 048
     Dates: start: 20160406
  9. METHYCOBAL [Concomitant]
     Active Substance: METHYLCOBALAMIN
     Indication: PROPHYLAXIS
     Dosage: 500 MUG, TID
     Route: 048
     Dates: start: 20160406
  10. RITUXAN [Concomitant]
     Active Substance: RITUXIMAB
     Indication: B-CELL LYMPHOMA
     Dosage: 570 MG, Q3WK
     Route: 041
     Dates: start: 20160406, end: 20160427

REACTIONS (1)
  - Takayasu^s arteritis [Recovering/Resolving]

NARRATIVE: CASE EVENT DATE: 20160505
